FAERS Safety Report 15627965 (Version 1)
Quarter: 2018Q4

REPORT INFORMATION
  Report Type: Spontaneous
  Country: CH (occurrence: CH)
  Receive Date: 20181116
  Receipt Date: 20181116
  Transmission Date: 20190205
  Serious: Yes (Hospitalization, Disabling, Other)
  Sender: FDA-Public Use
  Company Number: CH-SHIRE-CH201843963

PATIENT

DRUGS (7)
  1. ELVANSE [Suspect]
     Active Substance: LISDEXAMFETAMINE DIMESYLATE
     Dosage: 20 MG, UNK
     Route: 065
     Dates: start: 201804, end: 20181004
  2. QUETIAPINE. [Suspect]
     Active Substance: QUETIAPINE
     Indication: PRODUCT USED FOR UNKNOWN INDICATION
     Dosage: UNK UNK, AS REQ^D
     Route: 065
     Dates: start: 2015
  3. AKINETON [Concomitant]
     Active Substance: BIPERIDEN HYDROCHLORIDE
     Indication: PRODUCT USED FOR UNKNOWN INDICATION
  4. LORAZEPAM. [Concomitant]
     Active Substance: LORAZEPAM
     Indication: PRODUCT USED FOR UNKNOWN INDICATION
  5. ELVANSE [Suspect]
     Active Substance: LISDEXAMFETAMINE DIMESYLATE
     Indication: PRODUCT USED FOR UNKNOWN INDICATION
     Dosage: 30 MG, UNK
     Route: 065
     Dates: start: 201712, end: 201801
  6. LITHIOFOR [Suspect]
     Active Substance: LITHIUM SULFATE
     Indication: PRODUCT USED FOR UNKNOWN INDICATION
     Dosage: UNK
     Route: 065
     Dates: start: 201704
  7. BENZODIAZEPINE RELATED DRUGS [Concomitant]
     Active Substance: BENZODIAZEPINE
     Indication: PRODUCT USED FOR UNKNOWN INDICATION
     Dosage: UNK
     Dates: end: 201808

REACTIONS (11)
  - Limb discomfort [Not Recovered/Not Resolved]
  - Dystonia [Recovering/Resolving]
  - Dyskinesia [Recovering/Resolving]
  - Thinking abnormal [Unknown]
  - Dysgraphia [Recovering/Resolving]
  - Pain in extremity [Unknown]
  - Tremor [Recovering/Resolving]
  - Vitamin B12 deficiency [Unknown]
  - Intentional self-injury [Unknown]
  - Viral infection [Unknown]
  - Paraesthesia oral [Unknown]

NARRATIVE: CASE EVENT DATE: 201808
